FAERS Safety Report 6814222-3 (Version None)
Quarter: 2010Q2

REPORT INFORMATION
  Report Type: 
  Country: None (occurrence: None)
  Receive Date: 20100629
  Receipt Date: 20100618
  Transmission Date: 20101027
  Serious: Yes (Hospitalization)
  Sender: FDA-Public Use
  Company Number: JPI-P-011011

PATIENT
  Age: 43 Year
  Sex: Female

DRUGS (1)
  1. XYREM [Suspect]
     Indication: DRUG USE FOR UNKNOWN INDICATION
     Dosage: (3 TO 3.75 GM TWICE NIGHTLY), ORAL; (2.25 TO 3.75 GM TWICE NIGHTLY), ORAL
     Route: 048
     Dates: start: 20050825

REACTIONS (2)
  - HEADACHE [None]
  - OCCIPITAL NEURALGIA [None]
